FAERS Safety Report 5669251-2 (Version None)
Quarter: 2008Q1

REPORT INFORMATION
  Report Type: 
  Country: None (occurrence: None)
  Receive Date: 20080317
  Receipt Date: 20080306
  Transmission Date: 20080703
  Serious: Yes (Other)
  Sender: FDA-Public Use
  Company Number: JP-ROCHE-552401

PATIENT
  Age: 3 Year
  Sex: Female

DRUGS (2)
  1. TAMIFLU [Suspect]
     Route: 048
     Dates: start: 20080305, end: 20080305
  2. AMBROXOL HYDROCHLORIDE [Concomitant]
     Dosage: DOSE FORM: ORAL FORMULATION (NOS)
     Route: 048

REACTIONS (2)
  - CONVULSION [None]
  - VOMITING [None]
